FAERS Safety Report 4422115-4 (Version None)
Quarter: 2004Q3

REPORT INFORMATION
  Report Type: 
  Country: None (occurrence: None)
  Receive Date: 20040806
  Receipt Date: 20040726
  Transmission Date: 20050211
  Serious: Yes (Hospitalization)
  Sender: FDA-Public Use
  Company Number: HQWYE615615DEC03

PATIENT
  Age: 70 Year
  Sex: Female

DRUGS (2)
  1. MYLOTARG [Suspect]
     Indication: ACUTE MYELOID LEUKAEMIA
     Dosage: 10 MG 1X PER 1 DAY, INTRAVENOUS
     Route: 042
     Dates: start: 20030724, end: 20030724
  2. NOVANTRONE [Concomitant]

REACTIONS (18)
  - ACUTE RESPIRATORY DISTRESS SYNDROME [None]
  - CARDIAC FAILURE CONGESTIVE [None]
  - DILATATION ATRIAL [None]
  - ECHOCARDIOGRAM ABNORMAL [None]
  - FEBRILE NEUTROPENIA [None]
  - FLUID OVERLOAD [None]
  - FULL BLOOD COUNT DECREASED [None]
  - GLYCOPEPTIDE ANTIBIOTIC RESISTANT ENTEROCOCCAL INFECTION [None]
  - MITRAL VALVE INCOMPETENCE [None]
  - PNEUMONIA [None]
  - POLYURIA [None]
  - PULMONARY OEDEMA [None]
  - RENAL FAILURE ACUTE [None]
  - RESPIRATORY MONILIASIS [None]
  - TRICUSPID VALVE INCOMPETENCE [None]
  - TROPONIN INCREASED [None]
  - VENTRICULAR HYPOKINESIA [None]
  - WEIGHT INCREASED [None]
